FAERS Safety Report 5064341-X (Version None)
Quarter: 2006Q3

REPORT INFORMATION
  Report Type: 
  Country: None (occurrence: None)
  Receive Date: 20060725
  Receipt Date: 20060711
  Transmission Date: 20061208
  Serious: Yes (Hospitalization, Other)
  Sender: FDA-Public Use
  Company Number: 2006-BP-07902RO

PATIENT
  Age: 75 Year
  Sex: Female

DRUGS (7)
  1. DEXAMETHASONE [Suspect]
  2. TEMOZOLOMIDE (TEMOZOLOMIDE) [Suspect]
     Indication: OLIGODENDROGLIOMA
     Dosage: SEE IMAGE
     Route: 048
     Dates: start: 20060519, end: 20060523
  3. TEMOZOLOMIDE (TEMOZOLOMIDE) [Suspect]
     Indication: OLIGODENDROGLIOMA
     Dosage: SEE IMAGE
     Route: 048
     Dates: start: 20060313
  4. AVELOX [Concomitant]
  5. KEPPRA [Concomitant]
  6. LESCOL [Concomitant]
  7. RADIATION THERAPY [Concomitant]

REACTIONS (4)
  - DEEP VEIN THROMBOSIS [None]
  - OEDEMA PERIPHERAL [None]
  - PNEUMONIA [None]
  - PULMONARY EMBOLISM [None]
